FAERS Safety Report 7166888-9 (Version None)
Quarter: 2010Q4

REPORT INFORMATION
  Report Type: 
  Country: None (occurrence: None)
  Receive Date: 20101216
  Receipt Date: 20101202
  Transmission Date: 20110411
  Serious: Yes (Other)
  Sender: FDA-Public Use
  Company Number: US-ROCHE-724530

PATIENT
  Sex: Male
  Weight: 63.5 kg

DRUGS (5)
  1. ACCUTANE [Suspect]
     Indication: ACNE
     Route: 048
     Dates: start: 19940401, end: 19941001
  2. ACCUTANE [Suspect]
     Route: 048
     Dates: start: 19950412, end: 19951011
  3. BENZAC [Concomitant]
     Dates: start: 19950208
  4. TETRACYCLINE [Concomitant]
  5. CLEOCIN T [Concomitant]
     Dosage: CLEOCIN T SOLUTION
     Dates: start: 19950415

REACTIONS (11)
  - ABDOMINAL PAIN [None]
  - COLITIS ULCERATIVE [None]
  - CROHN'S DISEASE [None]
  - DRY SKIN [None]
  - HAEMORRHOIDS [None]
  - INFLAMMATORY BOWEL DISEASE [None]
  - IRRITABLE BOWEL SYNDROME [None]
  - MENTAL DISORDER [None]
  - NAUSEA [None]
  - OSTEOARTHRITIS [None]
  - RECTAL HAEMORRHAGE [None]
